FAERS Safety Report 10077186 (Version 1)
Quarter: 2014Q2

REPORT INFORMATION
  Report Type: Spontaneous
  Country: US (occurrence: US)
  Receive Date: 20140414
  Receipt Date: 20140414
  Transmission Date: 20141212
  Serious: No
  Sender: FDA-Public Use
  Company Number: US-009507513-1404USA006718

PATIENT
  Sex: Male

DRUGS (1)
  1. PROSCAR [Suspect]
     Indication: PROSTATIC DISORDER
     Route: 048

REACTIONS (2)
  - Hair growth abnormal [Unknown]
  - Therapeutic response changed [Unknown]
